FAERS Safety Report 13738720 (Version 1)
Quarter: 2017Q3

REPORT INFORMATION
  Report Type: Spontaneous
  Country: US (occurrence: US)
  Receive Date: 20170710
  Receipt Date: 20170710
  Transmission Date: 20171127
  Serious: No
  Sender: FDA-Public Use
  Company Number: US-SAOL THERAPEUTICS-2017SAO00123

PATIENT
  Age: 46 Year
  Sex: Female

DRUGS (2)
  1. BACLOFEN. [Suspect]
     Active Substance: BACLOFEN
     Indication: MUSCLE SPASTICITY
     Dosage: 25 ?G, \DAY
  2. BACLOFEN. [Suspect]
     Active Substance: BACLOFEN
     Indication: MULTIPLE SCLEROSIS
     Dosage: 29.98 ?G, \DAY
     Route: 037

REACTIONS (2)
  - Therapy non-responder [Unknown]
  - Fatigue [Unknown]

NARRATIVE: CASE EVENT DATE: 20161222
